APPROVED DRUG PRODUCT: VILTEPSO
Active Ingredient: VILTOLARSEN
Strength: 250MG/5ML (50MG/ML)
Dosage Form/Route: SOLUTION;INTRAVENOUS
Application: N212154 | Product #001
Applicant: NIPPON SHINYAKU CO LTD
Approved: Aug 12, 2020 | RLD: Yes | RS: Yes | Type: RX

PATENTS:
Patent 10870676 | Expires: Aug 31, 2031
Patent 9079934 | Expires: Apr 3, 2034

EXCLUSIVITY:
Code: ODE-280 | Date: Aug 12, 2027